FAERS Safety Report 15711178 (Version 4)
Quarter: 2019Q4

REPORT INFORMATION
  Report Type: Report from Study
  Country: MX (occurrence: MX)
  Receive Date: 20181211
  Receipt Date: 20191231
  Transmission Date: 20200122
  Serious: Yes (Other)
  Sender: FDA-Public Use
  Company Number: PHHY2018MX181025

PATIENT
  Age: 61 Year
  Sex: Female
  Weight: 70 kg

DRUGS (4)
  1. EXFORGE HCT [Suspect]
     Active Substance: AMLODIPINE BESYLATE\HYDROCHLOROTHIAZIDE\VALSARTAN
     Indication: HYPERTENSION
     Dosage: 1 DF, QD (5 MG AMLODIPINE, 12.5 MG HYDROCHLOROTHIAZIDE, 160 MG VALSARTAN), 08 YEARS AGO
     Route: 048
  2. GLUCOSAMINE [Concomitant]
     Active Substance: GLUCOSAMINE
     Indication: MEDICAL DIET
     Dosage: 1 DF, QD, 2 MONTHS AGO
     Route: 048
  3. EXFORGE HCT [Suspect]
     Active Substance: AMLODIPINE BESYLATE\HYDROCHLOROTHIAZIDE\VALSARTAN
     Dosage: 1 DF, QD (5 MG AMLODIPINE, 12.5 MG HYDROCHLOROTHIAZIDE, 160 MG VALSARTAN), 8 YEARS AGO
     Route: 048
  4. OMEGA 3 [Concomitant]
     Active Substance: OMEGA-3 FATTY ACIDS
     Indication: MEDICAL DIET
     Dosage: 1 DF, QD, SIX MONTHS AGO
     Route: 048

REACTIONS (9)
  - Peripheral vascular disorder [Not Recovered/Not Resolved]
  - Hiatus hernia [Unknown]
  - Colitis [Unknown]
  - Gastrooesophageal reflux disease [Recovering/Resolving]
  - Malaise [Recovered/Resolved]
  - Hypoxia [Not Recovered/Not Resolved]
  - Anxiety [Recovered/Resolved]
  - Pulmonary hypertension [Not Recovered/Not Resolved]
  - Scar [Unknown]

NARRATIVE: CASE EVENT DATE: 201506
